FAERS Safety Report 24880440 (Version 1)
Quarter: 2025Q1

REPORT INFORMATION
  Report Type: Spontaneous
  Country: PH (occurrence: PH)
  Receive Date: 20250123
  Receipt Date: 20250123
  Transmission Date: 20250409
  Serious: Yes (Death, Other)
  Sender: COVIS PHARMA GMBH
  Company Number: PH-Covis Pharma GmbH-2025COV00075

PATIENT
  Age: 22 Year
  Sex: Male

DRUGS (1)
  1. RILUZOLE [Suspect]
     Active Substance: RILUZOLE
     Indication: Amyotrophic lateral sclerosis
     Route: 048

REACTIONS (3)
  - Pneumonia aspiration [Fatal]
  - Disease progression [Unknown]
  - Drug ineffective [Unknown]
